FAERS Safety Report 8926656 (Version 1)
Quarter: 2012Q4

REPORT INFORMATION
  Report Type: 
  Country: ES (occurrence: ES)
  Receive Date: 20121127
  Receipt Date: 20121127
  Transmission Date: 20130627
  Serious: Yes (Other)
  Sender: FDA-Public Use
  Company Number: PHHY2012ES107417

PATIENT
  Age: 64 Year
  Sex: Female

DRUGS (2)
  1. ALENDRONATE [Suspect]
     Indication: OSTEOPOROSIS
  2. CALCIUM [Concomitant]

REACTIONS (6)
  - Sinusitis [Unknown]
  - Oroantral fistula [Unknown]
  - Osteonecrosis of jaw [Unknown]
  - Osteomyelitis [Unknown]
  - Exposed bone in jaw [Unknown]
  - Bone pain [Unknown]
